FAERS Safety Report 9202887 (Version 3)
Quarter: 2013Q2

REPORT INFORMATION
  Report Type: Spontaneous
  Country: US (occurrence: US)
  Receive Date: 20130402
  Receipt Date: 20130513
  Transmission Date: 20140414
  Serious: Yes (Hospitalization)
  Sender: FDA-Public Use
  Company Number: US-BIOGENIDEC-2013BI028667

PATIENT
  Age: 47 Year
  Sex: Male

DRUGS (1)
  1. TYSABRI [Suspect]
     Indication: MULTIPLE SCLEROSIS
     Route: 042
     Dates: start: 20100111

REACTIONS (5)
  - Cellulitis [Not Recovered/Not Resolved]
  - Wound [Not Recovered/Not Resolved]
  - Fall [Recovered/Resolved]
  - Toe amputation [Recovered/Resolved]
  - Foot fracture [Recovered/Resolved]
